FAERS Safety Report 8935935 (Version 1)
Quarter: 2012Q4

REPORT INFORMATION
  Report Type: 
  Country: US (occurrence: US)
  Receive Date: 20121130
  Receipt Date: 20121130
  Transmission Date: 20130627
  Serious: No
  Sender: FDA-Public Use
  Company Number: US-ABBOTT-12P-163-0994837-00

PATIENT
  Sex: Male
  Weight: 108.96 kg

DRUGS (5)
  1. ANDROGEL [Suspect]
     Indication: BLOOD TESTOSTERONE DECREASED
     Route: 061
     Dates: start: 201210
  2. ANDROGEL [Suspect]
     Route: 061
     Dates: start: 201210
  3. COREG [Concomitant]
     Indication: CARDIAC DISORDER
  4. COREG [Concomitant]
     Indication: HYPERTENSION
  5. VYTORIN [Concomitant]
     Indication: BLOOD CHOLESTEROL INCREASED

REACTIONS (6)
  - Abdominal discomfort [Recovered/Resolved]
  - Malaise [Recovered/Resolved]
  - Blood testosterone decreased [Not Recovered/Not Resolved]
  - Tension [Recovered/Resolved]
  - Feeling abnormal [Recovered/Resolved]
  - Dysgeusia [Not Recovered/Not Resolved]
